FAERS Safety Report 23569024 (Version 1)
Quarter: 2024Q1

REPORT INFORMATION
  Report Type: Report from Study
  Country: US (occurrence: US)
  Receive Date: 20240227
  Receipt Date: 20240227
  Transmission Date: 20240410
  Serious: No
  Sender: FDA-Public Use
  Company Number: US-ORG100014127-2023001051

PATIENT
  Age: 74 Year
  Sex: Female

DRUGS (16)
  1. METOPIRONE [Suspect]
     Active Substance: METYRAPONE
     Indication: Cushing^s syndrome
     Dosage: TAKE 2 CAPSULES ONCE DAILY IN THE EVENING
     Route: 048
     Dates: start: 20201008
  2. METOPIRONE [Suspect]
     Active Substance: METYRAPONE
     Indication: Cushing^s syndrome
     Dosage: TAKE 2 CAPSULES ONCE DAILY IN THE EVENING
  3. METOPIRONE [Suspect]
     Active Substance: METYRAPONE
     Indication: Cushing^s syndrome
     Dosage: RESTARTED
  4. Atorvastatin tablet 80mg [Concomitant]
     Indication: Product used for unknown indication
  5. Az?lastine spray 0.1% [Concomitant]
     Indication: Product used for unknown indication
  6. Bystolic tablet 10mg [Concomitant]
     Indication: Product used for unknown indication
  7. DICLOFENAC [Concomitant]
     Active Substance: DICLOFENAC
     Indication: Product used for unknown indication
  8. Dicyclomine 10mg capsule [Concomitant]
     Indication: Product used for unknown indication
  9. Duloxetine capsule 60mg [Concomitant]
     Indication: Product used for unknown indication
  10. Livalo tablet 2mg [Concomitant]
     Indication: Product used for unknown indication
  11. montelukast tablet 10mg [Concomitant]
     Indication: Product used for unknown indication
  12. NovoLog  injection flexPen [Concomitant]
     Indication: Product used for unknown indication
  13. omeprazole capsule 20mg [Concomitant]
     Indication: Product used for unknown indication
  14. Ropinirole  tablet 2mg [Concomitant]
     Indication: Product used for unknown indication
  15. toujeo solostar 300 units/ml [Concomitant]
     Indication: Product used for unknown indication
  16. Trazodone tablet 50mg [Concomitant]
     Indication: Product used for unknown indication

REACTIONS (1)
  - Off label use [Unknown]

NARRATIVE: CASE EVENT DATE: 20230601
